FAERS Safety Report 23446955 (Version 2)
Quarter: 2025Q2

REPORT INFORMATION
  Report Type: Report from Study
  Country: US (occurrence: None)
  Receive Date: 20240126
  Receipt Date: 20250620
  Transmission Date: 20250716
  Serious: Yes (Other)
  Sender: INCYTE
  Company Number: US-INCYTE CORPORATION-2024IN000726

PATIENT

DRUGS (5)
  1. JAKAFI [Suspect]
     Active Substance: RUXOLITINIB
     Indication: Chronic graft versus host disease
     Route: 065
  2. JAKAFI [Suspect]
     Active Substance: RUXOLITINIB
     Indication: Graft versus host disease
     Route: 065
  3. JAKAFI [Suspect]
     Active Substance: RUXOLITINIB
     Route: 065
  4. JAKAFI [Suspect]
     Active Substance: RUXOLITINIB
     Route: 065
  5. JAKAFI [Suspect]
     Active Substance: RUXOLITINIB
     Route: 065

REACTIONS (7)
  - Deep vein thrombosis [Unknown]
  - Chronic graft versus host disease [Not Recovered/Not Resolved]
  - Symptom recurrence [Not Recovered/Not Resolved]
  - Dry eye [Unknown]
  - Brain fog [Unknown]
  - Ill-defined disorder [Unknown]
  - Fatigue [Unknown]
